FAERS Safety Report 6493236-X (Version None)
Quarter: 2009Q4

REPORT INFORMATION
  Report Type: 
  Country: None (occurrence: None)
  Receive Date: 20091214
  Receipt Date: 20091204
  Transmission Date: 20100525
  Serious: Yes (Other)
  Sender: FDA-Public Use
  Company Number: US-ASTRAZENECA-2009SE30263

PATIENT
  Age: 52 Year
  Sex: Female
  Weight: 68 kg

DRUGS (2)
  1. SEROQUEL [Suspect]
     Indication: PERSONALITY DISORDER
     Dosage: 50 TABLETS OF 100 MG AND 25-30 TABLETS OF 50 MG AT ONCE
     Route: 048
     Dates: start: 20040101, end: 20040101
  2. TRAZODONE HCL [Concomitant]

REACTIONS (2)
  - OVERDOSE [None]
  - SUICIDE ATTEMPT [None]
